FAERS Safety Report 7116025-1 (Version None)
Quarter: 2010Q4

REPORT INFORMATION
  Report Type: 
  Country: None (occurrence: None)
  Receive Date: 20101122
  Receipt Date: 20101110
  Transmission Date: 20110411
  Serious: Yes (Death, Hospitalization)
  Sender: FDA-Public Use
  Company Number: FR-ROCHE-732010

PATIENT
  Sex: Male
  Weight: 74 kg

DRUGS (3)
  1. PEGINTERFERON ALFA-2A [Suspect]
     Dosage: ROUTE: SUBCUTANEOUS INJECTION
     Route: 058
     Dates: start: 20100701, end: 20101005
  2. RIBAVIRIN [Suspect]
     Route: 048
     Dates: start: 20100701, end: 20101005
  3. TELAPREVIR [Suspect]
     Dosage: FREQUENCY EVERY 8 HOUR, Q8H
     Route: 048
     Dates: start: 20100701, end: 20100923

REACTIONS (1)
  - MYOCARDIAL INFARCTION [None]
